FAERS Safety Report 6328455-6 (Version None)
Quarter: 2009Q3

REPORT INFORMATION
  Report Type: 
  Country: None (occurrence: None)
  Receive Date: 20090825
  Receipt Date: 20090715
  Transmission Date: 20100115
  Serious: No
  Sender: FDA-Public Use
  Company Number: US-ABBOTT-09P-163-0585931-00

PATIENT
  Sex: Female
  Weight: 81.72 kg

DRUGS (4)
  1. SYNTHROID [Suspect]
     Indication: GOITRE
     Dates: start: 20060101
  2. EFFEXOR [Concomitant]
     Indication: HOT FLUSH
  3. HYZAAR [Concomitant]
     Indication: BLOOD PRESSURE
     Dosage: 50/12.5
  4. BIOTIN [Concomitant]
     Indication: DRUG USE FOR UNKNOWN INDICATION

REACTIONS (10)
  - DRY SKIN [None]
  - DYSPNOEA [None]
  - FATIGUE [None]
  - HEADACHE [None]
  - IRRITABILITY [None]
  - MUSCLE SPASMS [None]
  - NAIL GROWTH ABNORMAL [None]
  - SINUSITIS [None]
  - TEMPERATURE INTOLERANCE [None]
  - WEIGHT INCREASED [None]
